FAERS Safety Report 7245457-6 (Version None)
Quarter: 2011Q1

REPORT INFORMATION
  Report Type: 
  Country: None (occurrence: None)
  Receive Date: 20110126
  Receipt Date: 20110119
  Transmission Date: 20110831
  Serious: Yes (Other)
  Sender: FDA-Public Use
  Company Number: PHHY2011DE04834

PATIENT
  Age: 80 Year
  Sex: Female

DRUGS (8)
  1. MARCUMAR [Concomitant]
  2. DIOVAN [Suspect]
     Indication: HYPERTENSION
     Dosage: 80 MG, QD
     Dates: end: 20100101
  3. DIOVAN [Suspect]
     Dosage: 240 MG, QD
     Dates: start: 20110101
  4. DIOVAN [Suspect]
     Indication: PROTEINURIA
     Dosage: 160 MG, QD
     Dates: start: 20100101, end: 20110101
  5. INSULIN [Concomitant]
  6. DIGITOXIN [Concomitant]
  7. BISOPROLOL [Concomitant]
  8. AQUAPHOR [Concomitant]

REACTIONS (1)
  - PROTEINURIA [None]
